FAERS Safety Report 13622297 (Version 1)
Quarter: 2017Q2

REPORT INFORMATION
  Report Type: Spontaneous
  Country: US (occurrence: US)
  Receive Date: 20170607
  Receipt Date: 20170607
  Transmission Date: 20170830
  Serious: No
  Sender: FDA-Public Use
  Company Number: US-ROCHE-1808942

PATIENT
  Sex: Female

DRUGS (2)
  1. KLONOPIN [Suspect]
     Active Substance: CLONAZEPAM
     Indication: INSOMNIA
     Route: 065
  2. ZYPREXA [Concomitant]
     Active Substance: OLANZAPINE
     Route: 065

REACTIONS (8)
  - Abdominal discomfort [Unknown]
  - Insomnia [Unknown]
  - Malaise [Unknown]
  - Angina pectoris [Unknown]
  - Suspected counterfeit product [Unknown]
  - Abdominal pain upper [Unknown]
  - Drug ineffective [Unknown]
  - Hepatic pain [Unknown]
